FAERS Safety Report 16988059 (Version 2)
Quarter: 2019Q4

REPORT INFORMATION
  Report Type: Report from Study
  Country: US (occurrence: US)
  Receive Date: 20191104
  Receipt Date: 20191108
  Transmission Date: 20200122
  Serious: Yes (Hospitalization, Other)
  Sender: FDA-Public Use
  Company Number: US-ROCHE-2342576

PATIENT
  Age: 64 Year
  Sex: Male
  Weight: 112.5 kg

DRUGS (7)
  1. ETOPOSIDE. [Suspect]
     Active Substance: ETOPOSIDE
     Indication: RICHTER^S SYNDROME
     Dosage: 18/JUN/2019 LAST DOSE
     Route: 042
     Dates: start: 20190515
  2. CYCLOPHOSPHAMIDE. [Suspect]
     Active Substance: CYCLOPHOSPHAMIDE
     Indication: RICHTER^S SYNDROME
     Dosage: 18/JUN/2019 MOST RECENT DOSE
     Route: 042
     Dates: start: 20190515
  3. RITUXIMAB. [Suspect]
     Active Substance: RITUXIMAB
     Indication: RICHTER^S SYNDROME
     Dosage: 18/JUN/2019 MOST RECENT DOSE
     Route: 042
     Dates: start: 20190515
  4. ONCOVIN [Suspect]
     Active Substance: VINCRISTINE SULFATE
     Indication: RICHTER^S SYNDROME
     Dosage: 18/JUN/2019 MOST RECENT DOSE
     Route: 042
     Dates: start: 20190515
  5. VENETOCLAX. [Suspect]
     Active Substance: VENETOCLAX
     Indication: RICHTER^S SYNDROME
     Dosage: MOST RECENT DOSE 16/JUN/2019
     Route: 042
     Dates: start: 20190606
  6. PREDNISONE. [Suspect]
     Active Substance: PREDNISONE
     Indication: RICHTER^S SYNDROME
     Dosage: 18/JUN/2019 LAST DOSE
     Route: 042
     Dates: start: 20190515
  7. DOXORUBICIN [Suspect]
     Active Substance: DOXORUBICIN
     Indication: RICHTER^S SYNDROME
     Dosage: 18/JUN/2019 MOST RECENT DOSE
     Route: 042
     Dates: start: 20190515

REACTIONS (5)
  - Anaemia [Not Recovered/Not Resolved]
  - Lymphocyte count decreased [Not Recovered/Not Resolved]
  - Neutrophil count decreased [Recovered/Resolved with Sequelae]
  - White blood cell count decreased [Not Recovered/Not Resolved]
  - Sepsis [Not Recovered/Not Resolved]

NARRATIVE: CASE EVENT DATE: 20190619
